FAERS Safety Report 6775274-2 (Version None)
Quarter: 2010Q2

REPORT INFORMATION
  Report Type: 
  Country: None (occurrence: None)
  Receive Date: 20100617
  Receipt Date: 20100609
  Transmission Date: 20101027
  Serious: Yes (Death, Hospitalization)
  Sender: FDA-Public Use
  Company Number: GXKR2010GB05323

PATIENT
  Age: 64 Year
  Sex: Male
  Weight: 76 kg

DRUGS (3)
  1. OXALIPLATIN [Suspect]
     Indication: COLORECTAL CANCER METASTATIC
     Dosage: 1/1 CYCLICAL
     Route: 041
     Dates: start: 20100205, end: 20100205
  2. OXALIPLATIN [Suspect]
     Dosage: 200 IU, 1/1 CYCLICAL
     Route: 041
     Dates: start: 20100126, end: 20100126
  3. XELODA [Suspect]
     Indication: COLORECTAL CANCER METASTATIC
     Dosage: 1500 IU, 2/3
     Route: 048
     Dates: start: 20100126, end: 20100130

REACTIONS (7)
  - DIARRHOEA [None]
  - DIHYDROPYRIMIDINE DEHYDROGENASE DEFICIENCY [None]
  - MUCOSAL INFLAMMATION [None]
  - NEUTROPENIA [None]
  - PERINEAL ULCERATION [None]
  - PHARYNGEAL ULCERATION [None]
  - THROMBOCYTOPENIA [None]
